FAERS Safety Report 26083893 (Version 1)
Quarter: 2025Q4

REPORT INFORMATION
  Report Type: Spontaneous
  Country: JP (occurrence: JP)
  Receive Date: 20251124
  Receipt Date: 20251124
  Transmission Date: 20260117
  Serious: Yes (Hospitalization, Other)
  Sender: AMGEN
  Company Number: JP-AMGEN-JPNSP2025197630

PATIENT
  Age: 9 Decade
  Sex: Female

DRUGS (3)
  1. BLINCYTO [Suspect]
     Active Substance: BLINATUMOMAB
     Indication: Product used for unknown indication
     Dosage: 9 MICROGRAM, DRIP INFUSION, (CYCLE 1 DAY 1) THERAPY WITHHELD
     Route: 040
     Dates: start: 20250924, end: 20250924
  2. BLINCYTO [Suspect]
     Active Substance: BLINATUMOMAB
     Dosage: 9 MICROGRAM, QD, DRIP INFUSION, CYCLE 1 DAY 8
     Route: 040
     Dates: start: 20250925, end: 2025
  3. BLINCYTO [Suspect]
     Active Substance: BLINATUMOMAB
     Dosage: UNK, (DRIP INFUSION)
     Route: 040
     Dates: start: 2025

REACTIONS (5)
  - Activities of daily living decreased [Unknown]
  - Immune effector cell-associated neurotoxicity syndrome [Recovered/Resolved]
  - Cytokine release syndrome [Recovered/Resolved]
  - Off label use [Unknown]
  - Platelet count abnormal [Not Recovered/Not Resolved]

NARRATIVE: CASE EVENT DATE: 20250901
